FAERS Safety Report 8481458-8 (Version None)
Quarter: 2012Q3

REPORT INFORMATION
  Report Type: 
  Country: None (occurrence: None)
  Receive Date: 20120702
  Receipt Date: 20120627
  Transmission Date: 20120928
  Serious: Yes (Other)
  Sender: FDA-Public Use
  Company Number: US-JNJFOC-20120517259

PATIENT
  Sex: Male

DRUGS (9)
  1. ULTRAM [Suspect]
     Route: 048
  2. ULTRAM [Suspect]
     Indication: HEADACHE
     Dosage: 6 TABLETS A DAY (2 TABLETS THREE TIMES A ADAY) STARTED IN 1994-95
     Route: 048
  3. INSULIN [Concomitant]
     Indication: DIABETES MELLITUS
     Dosage: 1994-95
     Route: 065
  4. ULTRAM [Suspect]
     Indication: CARPAL TUNNEL SYNDROME
     Dosage: 6 TABLETS A DAY (2 TABLETS THREE TIMES A ADAY) STARTED IN 1994-95
     Route: 048
  5. ULTRAM [Suspect]
     Indication: DIABETIC NEUROPATHY
     Dosage: 6 TABLETS A DAY (2 TABLETS THREE TIMES A ADAY) STARTED IN 1994-95
     Route: 048
  6. ULTRAM [Suspect]
     Route: 048
  7. ULTRAM [Suspect]
     Indication: ARTHRITIS
     Route: 048
  8. ULTRAM [Suspect]
     Dosage: 6 TABLETS A DAY (2 TABLETS THREE TIMES A ADAY) STARTED IN 1994-95
     Route: 048
  9. ULTRAM [Suspect]
     Route: 048

REACTIONS (9)
  - DRUG DEPENDENCE [None]
  - MALAISE [None]
  - AGGRESSION [None]
  - DRUG SCREEN FALSE POSITIVE [None]
  - WITHDRAWAL SYNDROME [None]
  - SUICIDAL IDEATION [None]
  - MUSCLE SPASMS [None]
  - BEDRIDDEN [None]
  - DEPRESSION [None]
